FAERS Safety Report 19036926 (Version 1)
Quarter: 2021Q1

REPORT INFORMATION
  Report Type: Other
  Country: US (occurrence: US)
  Receive Date: 20210322
  Receipt Date: 20210322
  Transmission Date: 20210420
  Serious: Yes (Hospitalization)
  Sender: FDA-Public Use
  Company Number: US-ROCHE-2789830

PATIENT
  Age: 54 Year
  Sex: Female
  Weight: 56.75 kg

DRUGS (5)
  1. DALFAMPRIDINE. [Concomitant]
     Active Substance: DALFAMPRIDINE
     Dosage: ONGOING :YES
     Route: 048
     Dates: start: 2010
  2. LEVOTHYROXINE. [Concomitant]
     Active Substance: LEVOTHYROXINE
     Indication: HYPOTHYROIDISM
     Dosage: ONGOING :YES
     Dates: start: 2001
  3. PROVIGIL [Concomitant]
     Active Substance: MODAFINIL
     Dosage: ONGOING :NO
  4. OCREVUS [Suspect]
     Active Substance: OCRELIZUMAB
     Indication: RELAPSING-REMITTING MULTIPLE SCLEROSIS
     Dosage: ONGOING :YES, DATES OF TREATMENT : 27?SEP?2019, 05?APR?2019, 22?MAR?2018, 22?MAR?2019, 31??MAR?2020
     Route: 042
     Dates: start: 201901
  5. ADDERALL [Concomitant]
     Active Substance: AMPHETAMINE ASPARTATE\AMPHETAMINE SULFATE\DEXTROAMPHETAMINE SACCHARATE\DEXTROAMPHETAMINE SULFATE
     Dosage: ONGOING :YES
     Route: 048

REACTIONS (2)
  - COVID-19 [Recovering/Resolving]
  - Fatigue [Unknown]

NARRATIVE: CASE EVENT DATE: 20201231
